FAERS Safety Report 20612591 (Version 1)
Quarter: 2022Q1

REPORT INFORMATION
  Report Type: Spontaneous
  Country: IT (occurrence: IT)
  Receive Date: 20220318
  Receipt Date: 20220318
  Transmission Date: 20220423
  Serious: Yes (Other)
  Sender: FDA-Public Use
  Company Number: IT-JNJFOC-20220323190

PATIENT
  Age: 25 Year
  Sex: Male
  Weight: 60 kg

DRUGS (3)
  1. RISPERDAL [Suspect]
     Active Substance: RISPERIDONE
     Indication: Product used for unknown indication
     Dosage: RISPERDAL 1 MG FILM COATED TABLETS
     Route: 048
  2. TAVOR (LORAZEPAM) [Suspect]
     Active Substance: LORAZEPAM
     Indication: Product used for unknown indication
     Dosage: TAVOR 1 MG 20 TABLETS
     Route: 048
  3. FLUVOXAMINE [Suspect]
     Active Substance: FLUVOXAMINE
     Indication: Product used for unknown indication
     Dosage: FLUVOXAMINE EG*1000 COATED TABLETS 100M
     Route: 065

REACTIONS (2)
  - Intentional self-injury [Unknown]
  - Intentional product misuse [Unknown]
